FAERS Safety Report 26101790 (Version 1)
Quarter: 2025Q4

REPORT INFORMATION
  Report Type: Spontaneous
  Country: EU (occurrence: EU)
  Receive Date: 20251128
  Receipt Date: 20251128
  Transmission Date: 20260118
  Serious: Yes (Other)
  Sender: AMGEN
  Company Number: EU-AMGEN-AUTSP2025231071

PATIENT
  Sex: Male

DRUGS (3)
  1. PROLIA [Suspect]
     Active Substance: DENOSUMAB
     Indication: Aneurysmal bone cyst
     Dosage: 60 MILLIGRAM, QMO, (1 MG/KG)
     Route: 065
  2. ZOLEDRONIC ACID [Concomitant]
     Active Substance: ZOLEDRONIC ACID
     Dosage: 0.025 MILLIGRAM/KILOGRAM
  3. ZOLEDRONIC ACID [Concomitant]
     Active Substance: ZOLEDRONIC ACID
     Dosage: 0.5 MILLIGRAM/KILOGRAM (AT SIX MONTHS)

REACTIONS (11)
  - Radius fracture [Unknown]
  - Clavicle fracture [Unknown]
  - Ulna fracture [Unknown]
  - Injury [Unknown]
  - Hypercalcaemia [Unknown]
  - COVID-19 [Unknown]
  - Blood creatinine increased [Unknown]
  - Off label use [Unknown]
  - Rebound effect [Unknown]
  - Aneurysmal bone cyst [Unknown]
  - Impaired healing [Unknown]
